FAERS Safety Report 9215968 (Version 2)
Quarter: 2013Q2

REPORT INFORMATION
  Report Type: Spontaneous
  Country: US (occurrence: US)
  Receive Date: 20130408
  Receipt Date: 20130507
  Transmission Date: 20140414
  Serious: Yes (Hospitalization, Other)
  Sender: FDA-Public Use
  Company Number: US-JNJFOC-20130205223

PATIENT
  Sex: Female
  Weight: 115.21 kg

DRUGS (11)
  1. DURAGESIC [Suspect]
     Indication: RHEUMATOID ARTHRITIS
     Route: 062
     Dates: start: 20101001
  2. DURAGESIC [Suspect]
     Indication: RHEUMATOID ARTHRITIS
     Route: 062
     Dates: start: 2008, end: 2008
  3. DURAGESIC [Suspect]
     Indication: RHEUMATOID ARTHRITIS
     Route: 062
     Dates: end: 201103
  4. DURAGESIC [Suspect]
     Indication: RHEUMATOID ARTHRITIS
     Dosage: NDC 50458-094-05
     Route: 062
     Dates: start: 201103
  5. UNSPECIFIED FENTANYL TRANSDERMAL SYSTEM [Suspect]
     Indication: RHEUMATOID ARTHRITIS
     Route: 062
     Dates: start: 2008
  6. DROPERIDOL [Concomitant]
     Indication: FAILURE TO THRIVE
     Route: 065
     Dates: end: 201301
  7. ATENOLOL [Concomitant]
     Indication: CARDIAC DISORDER
     Route: 048
  8. DIAMOX [Concomitant]
     Indication: BENIGN INTRACRANIAL HYPERTENSION
     Route: 048
  9. LUNESTA [Concomitant]
     Indication: INSOMNIA
     Dosage: AT NIGHT
     Route: 048
  10. REMERON [Concomitant]
     Indication: OBSESSIVE-COMPULSIVE DISORDER
     Dosage: AT NIGHT
     Route: 060
  11. LUVOX [Concomitant]
     Indication: OBSESSIVE-COMPULSIVE DISORDER
     Dosage: AT NIGHT
     Route: 065

REACTIONS (11)
  - Euphoric mood [Recovered/Resolved]
  - Rheumatoid arthritis [Not Recovered/Not Resolved]
  - Abnormal loss of weight [Not Recovered/Not Resolved]
  - Toxicity to various agents [Unknown]
  - Decreased appetite [Unknown]
  - Adverse event [Unknown]
  - Wrong technique in drug usage process [Unknown]
  - Product quality issue [Unknown]
  - Drug ineffective [Unknown]
  - Poor quality drug administered [Not Recovered/Not Resolved]
  - Oral pain [Unknown]
